FAERS Safety Report 6663551-5 (Version None)
Quarter: 2010Q2

REPORT INFORMATION
  Report Type: 
  Country: None (occurrence: None)
  Receive Date: 20100401
  Receipt Date: 20100325
  Transmission Date: 20101027
  Serious: Yes (Life-Threatening)
  Sender: FDA-Public Use
  Company Number: DZ-BRISTOL-MYERS SQUIBB COMPANY-15036015

PATIENT
  Age: 47 Year
  Sex: Male

DRUGS (4)
  1. ABILIFY [Suspect]
     Indication: PARANOIA
     Route: 048
     Dates: start: 20100308, end: 20100318
  2. RISPERIDONE [Concomitant]
  3. ATARAX [Concomitant]
  4. NOZINAN [Concomitant]

REACTIONS (1)
  - TACHYCARDIA PAROXYSMAL [None]
